FAERS Safety Report 15119419 (Version 3)
Quarter: 2018Q3

REPORT INFORMATION
  Report Type: Spontaneous
  Country: US (occurrence: US)
  Receive Date: 20180709
  Receipt Date: 20180730
  Transmission Date: 20181010
  Serious: Yes (Hospitalization)
  Sender: FDA-Public Use
  Company Number: US-BEH-2018092536

PATIENT
  Age: 60 Year
  Sex: Female
  Weight: 69.39 kg

DRUGS (15)
  1. LIPITOR [Concomitant]
     Active Substance: ATORVASTATIN CALCIUM
  2. ZOLMITRIPTAN. [Concomitant]
     Active Substance: ZOLMITRIPTAN
  3. ACETAMINOPHEN. [Concomitant]
     Active Substance: ACETAMINOPHEN
  4. HIZENTRA [Suspect]
     Active Substance: HUMAN IMMUNOGLOBULIN G
     Indication: OSTEOARTHRITIS
     Dosage: 10 G, QW
     Route: 058
     Dates: start: 20180628
  5. CLARITIN [Concomitant]
     Active Substance: LORATADINE
  6. VITAMIN D3 [Concomitant]
     Active Substance: CHOLECALCIFEROL
  7. LMX                                /00033401/ [Concomitant]
  8. ZETIA [Concomitant]
     Active Substance: EZETIMIBE
  9. RESTASIS [Concomitant]
     Active Substance: CYCLOSPORINE
  10. NEVANAC [Concomitant]
     Active Substance: NEPAFENAC
  11. LOTEMAX [Concomitant]
     Active Substance: LOTEPREDNOL ETABONATE
  12. DIPHENHYDRAMINE. [Concomitant]
     Active Substance: DIPHENHYDRAMINE
  13. ACCOLATE [Concomitant]
     Active Substance: ZAFIRLUKAST
  14. CALCIUM D3                         /00944201/ [Concomitant]
     Active Substance: CALCIUM CARBONATE\CHOLECALCIFEROL
  15. EPINEPHRINE. [Concomitant]
     Active Substance: EPINEPHRINE

REACTIONS (6)
  - Hypersensitivity [Unknown]
  - Chest discomfort [Unknown]
  - Blood pressure abnormal [Unknown]
  - Reaction to preservatives [Unknown]
  - Wheezing [Unknown]
  - Dyspnoea [Unknown]

NARRATIVE: CASE EVENT DATE: 20180628
